FAERS Safety Report 8066634-0 (Version None)
Quarter: 2012Q1

REPORT INFORMATION
  Report Type: 
  Country: None (occurrence: None)
  Receive Date: 20120124
  Receipt Date: 20120119
  Transmission Date: 20120608
  Serious: Yes (Other)
  Sender: FDA-Public Use
  Company Number: PHEH2012US001773

PATIENT

DRUGS (3)
  1. FOCALIN XR [Suspect]
     Dosage: 10 MG, TID
  2. ZOLOFT [Concomitant]
     Dosage: 20 MG, QD
  3. XANAX [Concomitant]
     Dosage: UNK UKN, UNK

REACTIONS (1)
  - ROAD TRAFFIC ACCIDENT [None]
